FAERS Safety Report 7349776-4 (Version None)
Quarter: 2011Q1

REPORT INFORMATION
  Report Type: 
  Country: None (occurrence: None)
  Receive Date: 20110314
  Receipt Date: 20110308
  Transmission Date: 20110831
  Serious: Yes (Death)
  Sender: FDA-Public Use
  Company Number: JP-ASTRAZENECA-2011SE12333

PATIENT
  Age: 65 Year
  Sex: Male

DRUGS (4)
  1. VANCOMYCIN [Suspect]
     Indication: PNEUMONIA
     Dosage: 0.5-1 GRAM
     Route: 042
     Dates: start: 20091023, end: 20091030
  2. OMEPRAL [Concomitant]
     Indication: ULCER
     Dates: start: 20091019, end: 20091101
  3. OMEPRAL [Concomitant]
     Indication: STRESS ULCER
     Dates: start: 20091019, end: 20091101
  4. MEROPEN [Suspect]
     Indication: PNEUMONIA
     Route: 042
     Dates: start: 20091008, end: 20091014

REACTIONS (2)
  - TOXIC EPIDERMAL NECROLYSIS [None]
  - GASTROINTESTINAL NECROSIS [None]
